FAERS Safety Report 21799808 (Version 1)
Quarter: 2022Q4

REPORT INFORMATION
  Report Type: Spontaneous
  Country: US (occurrence: US)
  Receive Date: 20221230
  Receipt Date: 20221230
  Transmission Date: 20230113
  Serious: No
  Sender: FDA-Public Use
  Company Number: US-BIOVITRUM-2022US15941

PATIENT
  Sex: Female
  Weight: 10 kg

DRUGS (2)
  1. SYNAGIS [Suspect]
     Active Substance: PALIVIZUMAB
     Indication: Premature baby
     Dates: start: 202202
  2. IRON\VITAMINS [Concomitant]
     Active Substance: IRON\VITAMINS

REACTIONS (2)
  - Illness [Unknown]
  - Product dose omission issue [Unknown]
